FAERS Safety Report 8370034-3 (Version None)
Quarter: 2012Q2

REPORT INFORMATION
  Report Type: 
  Country: None (occurrence: None)
  Receive Date: 20120518
  Receipt Date: 20120514
  Transmission Date: 20120825
  Serious: Yes (Other)
  Sender: FDA-Public Use
  Company Number: PHHY2012BR041726

PATIENT
  Age: 61 Year
  Sex: Female

DRUGS (2)
  1. INSULIN [Concomitant]
     Indication: DIABETES MELLITUS
  2. RASILEZ AMLO [Suspect]
     Indication: HYPERTENSION
     Dosage: 1 DF, Q12H

REACTIONS (3)
  - EXPIRED DRUG ADMINISTERED [None]
  - BLOOD PRESSURE INCREASED [None]
  - CATARACT [None]
